FAERS Safety Report 5163362-6 (Version None)
Quarter: 2006Q4

REPORT INFORMATION
  Report Type: 
  Country: None (occurrence: None)
  Receive Date: 20061204
  Receipt Date: 20061121
  Transmission Date: 20070319
  Serious: Yes (Hospitalization)
  Sender: FDA-Public Use
  Company Number: US-KINGPHARMUSA00001-K200601502

PATIENT
  Age: 51 Year
  Sex: Female

DRUGS (6)
  1. SONATA [Suspect]
     Dosage: 30 MG, SINGLE
     Route: 048
     Dates: start: 20060424, end: 20060424
  2. CIPRALEX /01588501/ [Concomitant]
     Indication: DEPRESSION
     Dosage: UNK, UNK
     Dates: start: 20060401
  3. DORMICUM /00036201/ [Suspect]
     Dosage: UNK, UNK
     Dates: start: 20060422, end: 20060423
  4. DORMICUM /00036201/ [Suspect]
     Dosage: 390 MG, SINGLE
     Route: 048
     Dates: start: 20060424, end: 20060424
  5. STILNOX /00914901/ [Suspect]
     Indication: DEPRESSION
     Dosage: UNK, UNK
     Route: 048
     Dates: start: 20060401, end: 20060423
  6. STILNOX /00914901/ [Suspect]
     Dosage: 120 MG, SINGLE
     Route: 048
     Dates: start: 20060424, end: 20060424

REACTIONS (3)
  - INFLAMMATION [None]
  - INTENTIONAL OVERDOSE [None]
  - MULTIPLE DRUG OVERDOSE INTENTIONAL [None]
